FAERS Safety Report 22385247 (Version 1)
Quarter: 2023Q2

REPORT INFORMATION
  Report Type: Spontaneous
  Country: US (occurrence: None)
  Receive Date: 20230529
  Receipt Date: 20230529
  Transmission Date: 20230722
  Serious: Yes (Hospitalization)
  Sender: FDA-Public Use
  Company Number: None

PATIENT
  Age: 93 Year
  Sex: Male

DRUGS (14)
  1. ABIRATERONE [Suspect]
     Active Substance: ABIRATERONE
     Indication: Prostate cancer
     Dosage: FREQUENCY : DAILY;?
     Route: 048
     Dates: start: 20230403
  2. LISINOPRIL [Concomitant]
     Active Substance: LISINOPRIL
  3. LOVASTATIN [Concomitant]
     Active Substance: LOVASTATIN
  4. MORPHINE SULFATE [Concomitant]
     Active Substance: MORPHINE SULFATE
  5. OMEPRAZOLE [Concomitant]
     Active Substance: OMEPRAZOLE
  6. PEPCID [Concomitant]
     Active Substance: FAMOTIDINE
  7. PREDNISONE [Concomitant]
     Active Substance: PREDNISONE
  8. PROSCAR [Concomitant]
     Active Substance: FINASTERIDE
  9. VITAMINS [Concomitant]
     Active Substance: VITAMINS
  10. TRELSTAR [Concomitant]
     Active Substance: TRIPTORELIN PAMOATE
  11. VITAMIN B12 [Concomitant]
     Active Substance: CYANOCOBALAMIN
  12. ZOFRAN [Concomitant]
     Active Substance: ONDANSETRON HYDROCHLORIDE
  13. ZOMETA [Concomitant]
     Active Substance: ZOLEDRONIC ACID
  14. ZYTIGA [Concomitant]
     Active Substance: ABIRATERONE ACETATE

REACTIONS (2)
  - Dyspnoea [None]
  - Oedema [None]
